FAERS Safety Report 15103250 (Version 2)
Quarter: 2018Q4

REPORT INFORMATION
  Report Type: Spontaneous
  Country: US (occurrence: US)
  Receive Date: 20180703
  Receipt Date: 20181218
  Transmission Date: 20190204
  Serious: Yes (Hospitalization)
  Sender: FDA-Public Use
  Company Number: US-OTSUKA-2018_017785

PATIENT
  Sex: Female

DRUGS (4)
  1. RISPERDAL [Concomitant]
     Active Substance: RISPERIDONE
     Indication: AFFECTIVE DISORDER
     Dosage: UNK
     Route: 065
  2. LAMICTAL [Concomitant]
     Active Substance: LAMOTRIGINE
     Indication: PRODUCT USED FOR UNKNOWN INDICATION
     Dosage: UNK
     Route: 065
  3. SEROQUEL [Concomitant]
     Active Substance: QUETIAPINE FUMARATE
     Indication: SLEEP DISORDER
     Dosage: 2 DF, QD (HS)
     Route: 065
  4. ABILIFY [Suspect]
     Active Substance: ARIPIPRAZOLE
     Indication: BIPOLAR DISORDER
     Dosage: 10 MG, QD
     Route: 065
     Dates: start: 20100602, end: 201306

REACTIONS (18)
  - Mental disorder [Unknown]
  - Aggression [Unknown]
  - Insomnia [Unknown]
  - Abnormal behaviour [Unknown]
  - Anosognosia [Unknown]
  - Grandiosity [Unknown]
  - Personal relationship issue [Unknown]
  - Social problem [Unknown]
  - Logorrhoea [Unknown]
  - Gambling disorder [Recovered/Resolved]
  - Agitation [Unknown]
  - Depression [Unknown]
  - Compulsive sexual behaviour [Recovered/Resolved]
  - Irritability [Unknown]
  - Emotional distress [Unknown]
  - Condition aggravated [Recovered/Resolved]
  - Compulsive shopping [Recovered/Resolved]
  - Economic problem [Unknown]

NARRATIVE: CASE EVENT DATE: 201202
